FAERS Safety Report 5864549-7 (Version None)
Quarter: 2008Q3

REPORT INFORMATION
  Report Type: 
  Country: None (occurrence: None)
  Receive Date: 20080829
  Receipt Date: 20080714
  Transmission Date: 20090109
  Serious: No
  Sender: FDA-Public Use
  Company Number: US-ABBOTT-08P-163-0462397-00

PATIENT
  Sex: Female
  Weight: 81.72 kg

DRUGS (3)
  1. SIMCOR [Suspect]
     Indication: DRUG USE FOR UNKNOWN INDICATION
     Dosage: 500/20 MG AT BEDTIME
     Dates: start: 20080630
  2. OLMESARTAN MEDOXOMIL [Concomitant]
     Indication: BLOOD PRESSURE
     Route: 048
     Dates: start: 20030101
  3. AMLODOTINE [Concomitant]
     Indication: BLOOD PRESSURE
     Route: 048
     Dates: start: 20070101

REACTIONS (1)
  - PRURITUS [None]
